FAERS Safety Report 22077810 (Version 1)
Quarter: 2023Q1

REPORT INFORMATION
  Report Type: Spontaneous
  Country: CN (occurrence: CN)
  Receive Date: 20230309
  Receipt Date: 20230309
  Transmission Date: 20230417
  Serious: Yes (Other)
  Sender: FDA-Public Use
  Company Number: CN-009507513-2303CHN002442

PATIENT
  Age: 81 Year
  Sex: Female
  Weight: 62 kg

DRUGS (4)
  1. CILASTATIN SODIUM\IMIPENEM [Suspect]
     Active Substance: CILASTATIN SODIUM\IMIPENEM
     Indication: Pneumonia bacterial
     Dosage: 0.5 GRAM, EVERY 12 HOURS
     Route: 041
     Dates: start: 20230130, end: 20230202
  2. CILASTATIN SODIUM\IMIPENEM [Suspect]
     Active Substance: CILASTATIN SODIUM\IMIPENEM
     Dosage: 0.5 GRAM, EVERY 8 HOURS
     Route: 041
     Dates: start: 20230203, end: 20230206
  3. SODIUM CHLORIDE [Concomitant]
     Active Substance: SODIUM CHLORIDE
     Dosage: 100 MILLILITER, EVERY 12 HOURS
     Route: 041
     Dates: start: 20230130, end: 20230202
  4. SODIUM CHLORIDE [Concomitant]
     Active Substance: SODIUM CHLORIDE
     Dosage: 100 MILLILITER, EVERY 8 HOURS
     Route: 041
     Dates: start: 20230203, end: 20230206

REACTIONS (1)
  - Epilepsy [Recovering/Resolving]

NARRATIVE: CASE EVENT DATE: 20230207
